FAERS Safety Report 5732206-3 (Version None)
Quarter: 2008Q2

REPORT INFORMATION
  Report Type: 
  Country: None (occurrence: None)
  Receive Date: 20080508
  Receipt Date: 20080428
  Transmission Date: 20081010
  Serious: Yes (Other)
  Sender: FDA-Public Use
  Company Number: JP-PFIZER INC-2008036250

PATIENT
  Age: 82 Year
  Sex: Male

DRUGS (2)
  1. DIFLUCAN [Suspect]
     Dosage: DAILY DOSE:100MG
  2. ANTIBIOTICS [Concomitant]

REACTIONS (1)
  - PSEUDOMEMBRANOUS COLITIS [None]
